FAERS Safety Report 20860342 (Version 2)
Quarter: 2024Q1

REPORT INFORMATION
  Report Type: Report from Study
  Country: US (occurrence: US)
  Receive Date: 20220523
  Receipt Date: 20240125
  Transmission Date: 20240409
  Serious: Yes (Hospitalization, Other)
  Sender: FDA-Public Use
  Company Number: US-TAKEDA-2022TUS033022

PATIENT
  Sex: Female

DRUGS (4)
  1. TEDUGLUTIDE [Suspect]
     Active Substance: TEDUGLUTIDE
     Indication: Product used for unknown indication
     Dosage: 0.265 MILLIGRAM, QD
     Route: 058
     Dates: start: 20220305, end: 202401
  2. TEDUGLUTIDE [Suspect]
     Active Substance: TEDUGLUTIDE
     Indication: Product used for unknown indication
     Dosage: 0.265 MILLIGRAM, QD
     Route: 058
     Dates: start: 20220305, end: 202401
  3. TEDUGLUTIDE [Suspect]
     Active Substance: TEDUGLUTIDE
     Indication: Product used for unknown indication
     Dosage: 0.265 MILLIGRAM, QD
     Route: 058
     Dates: start: 20220305, end: 202401
  4. TEDUGLUTIDE [Suspect]
     Active Substance: TEDUGLUTIDE
     Indication: Product used for unknown indication
     Dosage: 0.265 MILLIGRAM, QD
     Route: 058
     Dates: start: 20220305, end: 202401

REACTIONS (2)
  - Vascular device infection [Not Recovered/Not Resolved]
  - Product dose omission issue [Unknown]
